FAERS Safety Report 4650191-2 (Version None)
Quarter: 2005Q2

REPORT INFORMATION
  Report Type: 
  Country: None (occurrence: None)
  Receive Date: 20050428
  Receipt Date: 20050420
  Transmission Date: 20051028
  Serious: Yes (Hospitalization)
  Sender: FDA-Public Use
  Company Number: 2005AP02011

PATIENT
  Age: 47 Year
  Sex: Male
  Weight: 53 kg

DRUGS (19)
  1. IRESSA [Suspect]
     Indication: COLORECTAL CANCER METASTATIC
     Dosage: 250 MG DAILY PO
     Route: 048
     Dates: start: 20050129, end: 20050330
  2. IRINOTECAN HCL [Suspect]
     Indication: RENAL CANCER METASTATIC
     Dosage: 180 MG/M2 IV
     Route: 042
     Dates: start: 20050128, end: 20050129
  3. IRINOTECAN HCL [Suspect]
     Indication: RENAL CANCER METASTATIC
     Dosage: 180 MG/M2 IV
     Route: 042
     Dates: start: 20050214, end: 20050215
  4. IRINOTECAN HCL [Suspect]
     Indication: RENAL CANCER METASTATIC
     Dosage: 180 MG/M2 IV
     Route: 042
     Dates: start: 20050307, end: 20050308
  5. IRINOTECAN HCL [Suspect]
     Indication: RENAL CANCER METASTATIC
     Dosage: 180 MG/M2 IV
     Route: 042
     Dates: start: 20050321, end: 20050322
  6. FOLINIC ACID [Suspect]
     Indication: RENAL CANCER METASTATIC
     Dosage: 200 MG/M2 IV
     Route: 042
     Dates: start: 20050128, end: 20050129
  7. FOLINIC ACID [Suspect]
     Indication: RENAL CANCER METASTATIC
     Dosage: 200 MG/M2 IV
     Route: 042
     Dates: start: 20050214, end: 20050215
  8. FOLINIC ACID [Suspect]
     Indication: RENAL CANCER METASTATIC
     Dosage: 200 MG/M2 IV
     Route: 042
     Dates: start: 20050307, end: 20050308
  9. FOLINIC ACID [Suspect]
     Indication: RENAL CANCER METASTATIC
     Dosage: 200 MG/M2 IV
     Route: 042
     Dates: start: 20050321, end: 20050322
  10. FLUOROURACIL [Suspect]
     Dosage: 400 MG/M2 IV
     Route: 042
     Dates: start: 20050128, end: 20050129
  11. FLUOROURACIL [Suspect]
     Indication: RENAL CANCER METASTATIC
     Dosage: 600 MG/M2 IV
     Route: 042
     Dates: start: 20050128, end: 20050129
  12. FLUOROURACIL [Suspect]
     Indication: RENAL CANCER METASTATIC
     Dosage: 400 MG/M2 IV
     Route: 042
     Dates: start: 20050214, end: 20050215
  13. FLUOROURACIL [Suspect]
     Indication: RENAL CANCER METASTATIC
     Dosage: 600 MG/M2 IV
     Route: 042
     Dates: start: 20050214, end: 20050215
  14. FLUOROURACIL [Suspect]
     Indication: RENAL CANCER METASTATIC
     Dosage: 400 MG/M2 IV
     Route: 042
     Dates: start: 20050307, end: 20050308
  15. FLUOROURACIL [Suspect]
     Indication: RENAL CANCER METASTATIC
     Dosage: 600 MG/M2 IV
     Route: 042
     Dates: start: 20050307, end: 20050308
  16. FLUOROURACIL [Suspect]
     Indication: RENAL CANCER METASTATIC
     Dosage: 400 MG/M2 IV
     Route: 042
     Dates: start: 20050321, end: 20050322
  17. FLUOROURACIL [Suspect]
     Indication: RENAL CANCER METASTATIC
     Dosage: 600 MG/M2 IV
     Route: 042
     Dates: start: 20050321, end: 20050322
  18. SOLOSA [Concomitant]
  19. PARIET [Concomitant]

REACTIONS (11)
  - ABDOMINAL PAIN [None]
  - ANAEMIA [None]
  - ANOREXIA [None]
  - DIARRHOEA [None]
  - INTESTINAL OBSTRUCTION [None]
  - METASTATIC NEOPLASM [None]
  - NAUSEA [None]
  - PERITONEAL CARCINOMA [None]
  - PERITONEAL DISORDER [None]
  - VOMITING [None]
  - WEIGHT DECREASED [None]
